FAERS Safety Report 7967093-6 (Version None)
Quarter: 2011Q4

REPORT INFORMATION
  Report Type: 
  Country: None (occurrence: None)
  Receive Date: 20111209
  Receipt Date: 20111201
  Transmission Date: 20120403
  Serious: Yes (Death)
  Sender: FDA-Public Use
  Company Number: DE-PFIZER INC-2011297672

PATIENT
  Age: 73 Year
  Sex: Male
  Weight: 85 kg

DRUGS (5)
  1. PANTOPRAZOLE SODIUM [Suspect]
     Indication: GASTRITIS
     Dosage: 80 MG, DAILY
     Route: 048
     Dates: start: 20110914
  2. AVELOX [Suspect]
     Indication: INFECTION
     Dosage: 400 MG, DAILY
     Route: 048
     Dates: start: 20110913
  3. UNASYN [Concomitant]
     Indication: INFECTION
     Dosage: 3 G, UNK
     Route: 042
     Dates: start: 20110913
  4. PLAVIX [Concomitant]
     Indication: CORONARY ARTERY DISEASE
     Dosage: 75 MG, UNK
     Route: 048
     Dates: start: 20110812
  5. ASPIRIN [Concomitant]
     Indication: CORONARY ARTERY DISEASE
     Dosage: 100 MG, UNK
     Route: 048
     Dates: start: 20110915

REACTIONS (1)
  - COMPLETED SUICIDE [None]
